FAERS Safety Report 6890265-9 (Version None)
Quarter: 2010Q3

REPORT INFORMATION
  Report Type: 
  Country: None (occurrence: None)
  Receive Date: 20100730
  Receipt Date: 20080912
  Transmission Date: 20110219
  Serious: No
  Sender: FDA-Public Use
  Company Number: US-PFIZER INC-2008058031

PATIENT
  Sex: Female
  Weight: 51.71 kg

DRUGS (3)
  1. LIPITOR [Suspect]
  2. IBANDRONATE SODIUM [Concomitant]
     Route: 042
  3. IBUPROFEN TABLETS [Concomitant]

REACTIONS (5)
  - ANTINUCLEAR ANTIBODY POSITIVE [None]
  - ARTHRALGIA [None]
  - ARTHRITIS REACTIVE [None]
  - FATIGUE [None]
  - JOINT SWELLING [None]
